FAERS Safety Report 10006740 (Version 1)
Quarter: 2014Q1

REPORT INFORMATION
  Report Type: Spontaneous
  Country: US (occurrence: None)
  Receive Date: 20140312
  Receipt Date: 20140312
  Transmission Date: 20141002
  Serious: Yes (Other)
  Sender: FDA-Public Use
  Company Number: None

PATIENT
  Sex: Female

DRUGS (2)
  1. ABILIFY [Suspect]
     Indication: DEPRESSION
     Route: 048
     Dates: start: 200801, end: 20120601
  2. ABILIFY [Suspect]
     Indication: POLLAKIURIA
     Route: 048
     Dates: start: 200801, end: 20120601

REACTIONS (6)
  - Type 2 diabetes mellitus [None]
  - Malaise [None]
  - Asthenia [None]
  - Weight increased [None]
  - Depression [None]
  - Self injurious behaviour [None]
